FAERS Safety Report 8033967-3 (Version None)
Quarter: 2012Q1

REPORT INFORMATION
  Report Type: 
  Country: None (occurrence: None)
  Receive Date: 20120110
  Receipt Date: 20120105
  Transmission Date: 20120608
  Serious: Yes (Other)
  Sender: FDA-Public Use
  Company Number: GB-MERCK-1201GBR00010

PATIENT
  Age: 66 Year
  Sex: Female
  Weight: 70 kg

DRUGS (3)
  1. ZETIA [Suspect]
     Route: 048
     Dates: start: 20111222
  2. CHOLESTYRAMINE RESIN [Concomitant]
     Route: 065
     Dates: start: 20111114
  3. OMEPRAZOLE [Concomitant]
     Route: 065
     Dates: start: 20111110, end: 20111208

REACTIONS (1)
  - DYSPNOEA [None]
